FAERS Safety Report 4364055-5 (Version None)
Quarter: 2004Q2

REPORT INFORMATION
  Report Type: 
  Country: None (occurrence: None)
  Receive Date: 20040519
  Receipt Date: 20040510
  Transmission Date: 20050107
  Serious: Yes (Hospitalization)
  Sender: FDA-Public Use
  Company Number: GB-JNJFOC-20040501540

PATIENT
  Age: 67 Year
  Sex: Female

DRUGS (7)
  1. REMICADE [Suspect]
     Indication: PSORIATIC ARTHROPATHY
     Dosage: 200 MG, INTRAVENOUS
     Route: 042
     Dates: start: 20030714, end: 20031028
  2. VIOXX [Concomitant]
  3. AMITRIPTYLINE HCL [Concomitant]
  4. METHOTREXATE [Concomitant]
  5. AZATHIOPRINE [Concomitant]
  6. FOLIC ACID [Concomitant]
  7. TRAMADOL HCL [Concomitant]

REACTIONS (1)
  - BASAL CELL CARCINOMA [None]
